FAERS Safety Report 5820393-8 (Version None)
Quarter: 2008Q3

REPORT INFORMATION
  Report Type: 
  Country: None (occurrence: None)
  Receive Date: 20080724
  Receipt Date: 20070711
  Transmission Date: 20090109
  Serious: No
  Sender: FDA-Public Use
  Company Number: A0659996A

PATIENT
  Age: 66 Year
  Sex: Female

DRUGS (9)
  1. AVANDIA [Suspect]
     Dosage: 4MG PER DAY
     Route: 048
     Dates: start: 20070101, end: 20070623
  2. NIFEDIPINE [Concomitant]
  3. UNKNOWN MEDICATION [Concomitant]
  4. LISINOPRIL [Concomitant]
  5. METFORMIN [Concomitant]
  6. CYCLOBENZAPRINE HCL [Concomitant]
  7. DICLOFENAC SODIUM [Concomitant]
  8. ALLOPURINOL [Concomitant]
  9. SIMVASTATIN [Concomitant]

REACTIONS (4)
  - DIZZINESS [None]
  - FATIGUE [None]
  - HEADACHE [None]
  - SOMNOLENCE [None]
